FAERS Safety Report 5303353-5 (Version None)
Quarter: 2007Q2

REPORT INFORMATION
  Report Type: 
  Country: None (occurrence: None)
  Receive Date: 20070420
  Receipt Date: 20070410
  Transmission Date: 20071010
  Serious: Yes (Hospitalization, Other)
  Sender: FDA-Public Use
  Company Number: US-AMGEN-US214210

PATIENT
  Sex: Female
  Weight: 59.6 kg

DRUGS (3)
  1. PROCRIT [Suspect]
     Indication: MYELODYSPLASTIC SYNDROME
     Route: 065
  2. PREDNISONE TAB [Concomitant]
     Dates: start: 20070217
  3. CYTOXAN [Concomitant]
     Dates: start: 20070217

REACTIONS (3)
  - ANTI-ERYTHROPOIETIN ANTIBODY POSITIVE [None]
  - APLASIA PURE RED CELL [None]
  - URINARY TRACT INFECTION [None]
